FAERS Safety Report 7691143 (Version 4)
Quarter: 2013Q2

REPORT INFORMATION
  Report Type: Spontaneous
  Country: BR (occurrence: BR)
  Receive Date: 20101203
  Receipt Date: 20130627
  Transmission Date: 20140414
  Serious: Yes (Hospitalization, Other)
  Sender: FDA-Public Use
  Company Number: BR-US-EMD SERONO, INC.-7008651

PATIENT
  Age: 50 Year
  Sex: Male
  Weight: 84 kg

DRUGS (8)
  1. REBIF [Suspect]
     Indication: RELAPSING-REMITTING MULTIPLE SCLEROSIS
     Route: 058
     Dates: start: 20031016, end: 20070330
  2. REBIF [Suspect]
     Route: 058
     Dates: start: 20070817
  3. ENALAPRIL [Concomitant]
     Indication: PRODUCT USED FOR UNKNOWN INDICATION
  4. HYDROCHLOROTHIAZIDE [Concomitant]
     Indication: PRODUCT USED FOR UNKNOWN INDICATION
  5. GLIMEPIRIDE [Concomitant]
     Indication: PRODUCT USED FOR UNKNOWN INDICATION
  6. IMOSEC                             /00384301/ [Concomitant]
     Indication: PRODUCT USED FOR UNKNOWN INDICATION
  7. BUSCOPAN                           /00008702/ [Concomitant]
     Indication: PRODUCT USED FOR UNKNOWN INDICATION
  8. PURAN [Concomitant]
     Indication: PRODUCT USED FOR UNKNOWN INDICATION

REACTIONS (7)
  - Neoplasm malignant [Recovered/Resolved]
  - Diarrhoea [Unknown]
  - Dehydration [Unknown]
  - Renal cancer [Unknown]
  - Metastasis [Unknown]
  - Mediastinum neoplasm [Recovered/Resolved]
  - Blood glucose increased [Unknown]
